FAERS Safety Report 19901643 (Version 1)
Quarter: 2021Q3

REPORT INFORMATION
  Report Type: Report from Study
  Country: MX (occurrence: MX)
  Receive Date: 20210930
  Receipt Date: 20210930
  Transmission Date: 20211014
  Serious: Yes (Other)
  Sender: FDA-Public Use
  Company Number: MX-UCBSA-2021018612

PATIENT
  Sex: Female
  Weight: 77 kg

DRUGS (5)
  1. VIMPAT [Suspect]
     Active Substance: LACOSAMIDE
     Indication: EPILEPSY
     Dosage: 100MG .5TABLET TWICE DAILY
     Route: 048
     Dates: start: 201909
  2. DEXIVANT [Concomitant]
     Indication: PRODUCT USED FOR UNKNOWN INDICATION
  3. BRIVARACETAM [Suspect]
     Active Substance: BRIVARACETAM
     Indication: EPILEPSY
     Dosage: 100 MG .5 TABLET TWICE DAILY
     Route: 048
     Dates: start: 201909, end: 2020
  4. TRIBEDOCE [Concomitant]
     Indication: PRODUCT USED FOR UNKNOWN INDICATION
  5. CLONAZEPAM. [Concomitant]
     Active Substance: CLONAZEPAM
     Indication: SLEEP DISORDER
     Dosage: 1 DOSAGE FORM
     Route: 048

REACTIONS (5)
  - Gait disturbance [Recovering/Resolving]
  - Gastritis [Not Recovered/Not Resolved]
  - Epilepsy [Recovered/Resolved]
  - Sciatic nerve injury [Unknown]
  - Off label use [Unknown]

NARRATIVE: CASE EVENT DATE: 2019
